FAERS Safety Report 6531622-X (Version None)
Quarter: 2010Q1

REPORT INFORMATION
  Report Type: 
  Country: None (occurrence: None)
  Receive Date: 20100108
  Receipt Date: 20091228
  Transmission Date: 20100710
  Serious: Yes (Death, Hospitalization, Other)
  Sender: FDA-Public Use
  Company Number: US-PFIZER INC-2009254643

PATIENT
  Sex: Male

DRUGS (1)
  1. SUTENT [Suspect]
     Indication: METASTATIC RENAL CELL CARCINOMA
     Dosage: 25 MG, 2X/DAY, 28DAYS EVERY 42 DAYS
     Dates: start: 20090115, end: 20090823

REACTIONS (6)
  - ANAEMIA [None]
  - CHOLECYSTITIS ACUTE [None]
  - DISEASE PROGRESSION [None]
  - EROSIVE OESOPHAGITIS [None]
  - INCORRECT DOSE ADMINISTERED [None]
  - RENAL CANCER METASTATIC [None]
